FAERS Safety Report 5804470-3 (Version None)
Quarter: 2008Q3

REPORT INFORMATION
  Report Type: 
  Country: None (occurrence: None)
  Receive Date: 20080709
  Receipt Date: 20080707
  Transmission Date: 20090109
  Serious: Yes (Death)
  Sender: FDA-Public Use
  Company Number: B0445500A

PATIENT
  Age: 74 Year
  Sex: Female

DRUGS (6)
  1. LITHIUM CARBONATE [Suspect]
     Indication: DEPRESSION
     Route: 048
     Dates: end: 20060822
  2. CHLORPROMAZINE [Concomitant]
     Indication: MANIA
     Route: 048
     Dates: end: 20060811
  3. DONEPEZIL HCL [Concomitant]
     Indication: DEMENTIA
     Dosage: 10MG PER DAY
     Route: 048
     Dates: end: 20060825
  4. DOXEPIN HCL [Concomitant]
     Indication: DEPRESSION
     Dosage: 50MG PER DAY
     Route: 048
     Dates: end: 20060815
  5. LANSOPRAZOLE [Concomitant]
     Indication: DYSPEPSIA
     Dosage: 30MG PER DAY
     Route: 048
     Dates: start: 20060823
  6. ORPHENADRINE CITRATE [Concomitant]
     Dosage: 50MG THREE TIMES PER DAY
     Route: 048
     Dates: end: 20060823

REACTIONS (14)
  - BALANCE DISORDER [None]
  - CONFUSIONAL STATE [None]
  - DRUG TOXICITY [None]
  - ELECTROCARDIOGRAM ABNORMAL [None]
  - ELECTROENCEPHALOGRAM ABNORMAL [None]
  - FALL [None]
  - GASTRITIS EROSIVE [None]
  - HYPERNATRAEMIA [None]
  - LETHARGY [None]
  - METABOLIC ENCEPHALOPATHY [None]
  - POLLAKIURIA [None]
  - RENAL IMPAIRMENT [None]
  - RESTLESSNESS [None]
  - SOMNOLENCE [None]
